FAERS Safety Report 17594953 (Version 1)
Quarter: 2020Q1

REPORT INFORMATION
  Report Type: Spontaneous
  Country: US (occurrence: US)
  Receive Date: 20200328
  Receipt Date: 20200328
  Transmission Date: 20200409
  Serious: No
  Sender: FDA-Public Use
  Company Number: US-TEVA-2020-US-1212295

PATIENT
  Sex: Female
  Weight: 77.18 kg

DRUGS (1)
  1. PREGABALIN TEVA [Suspect]
     Active Substance: PREGABALIN
     Route: 065

REACTIONS (7)
  - Bedridden [Unknown]
  - Malaise [Unknown]
  - Pain [Unknown]
  - Gait disturbance [Unknown]
  - Appetite disorder [Unknown]
  - Influenza [Unknown]
  - Product substitution issue [Unknown]
